FAERS Safety Report 10391166 (Version 5)
Quarter: 2014Q3

REPORT INFORMATION
  Report Type: Spontaneous
  Country: JP (occurrence: JP)
  Receive Date: 20140818
  Receipt Date: 20140926
  Transmission Date: 20150326
  Serious: Yes (Life-Threatening, Hospitalization, Other)
  Sender: FDA-Public Use
  Company Number: JP-BRISTOL-MYERS SQUIBB COMPANY-21300751

PATIENT
  Age: 84 Year
  Sex: Female
  Weight: 42.2 kg

DRUGS (4)
  1. LIMAPROST [Concomitant]
     Active Substance: LIMAPROST
     Dosage: LIMAPROST ALFADEX 5 MICROGRAM,TAB
     Route: 048
  2. ELIQUIS [Suspect]
     Active Substance: APIXABAN
     Indication: THROMBOSIS PROPHYLAXIS
     Dosage: 2.5 MG BID:04JUL14
     Route: 048
     Dates: end: 20140724
  3. VASOLAN [Concomitant]
     Active Substance: VERAPAMIL HYDROCHLORIDE
  4. FUROSEMIDE. [Concomitant]
     Active Substance: FUROSEMIDE

REACTIONS (4)
  - Cardiac tamponade [Recovered/Resolved]
  - Pleural effusion [Recovered/Resolved]
  - Anaemia [Recovered/Resolved with Sequelae]
  - Liver disorder [Recovered/Resolved]

NARRATIVE: CASE EVENT DATE: 20140724
